FAERS Safety Report 4778794-5 (Version None)
Quarter: 2005Q3

REPORT INFORMATION
  Report Type: 
  Country: None (occurrence: None)
  Receive Date: 20050922
  Receipt Date: 20050915
  Transmission Date: 20060218
  Serious: Yes (Hospitalization)
  Sender: FDA-Public Use
  Company Number: 2005122435

PATIENT
  Age: 38 Year
  Sex: Male

DRUGS (2)
  1. NEURONTIN [Suspect]
     Indication: EPILEPSY
     Dosage: 1200 MG (400 MG, 3 IN 1 D), ORAL
     Route: 048
     Dates: start: 20010701, end: 20040801
  2. TRILEPTAL [Concomitant]

REACTIONS (2)
  - NERVOUS SYSTEM DISORDER [None]
  - SURGERY [None]
